FAERS Safety Report 11052094 (Version 1)
Quarter: 2015Q2

REPORT INFORMATION
  Report Type: Spontaneous
  Country: DE (occurrence: DE)
  Receive Date: 20150421
  Receipt Date: 20150421
  Transmission Date: 20150821
  Serious: Yes (Other)
  Sender: FDA-Public Use
  Company Number: DE-ASTRAZENECA-2015SE35177

PATIENT
  Sex: Female
  Weight: 3.1 kg

DRUGS (7)
  1. SEROQUEL [Suspect]
     Active Substance: QUETIAPINE FUMARATE
     Indication: BIPOLAR DISORDER
     Dosage: 200 [MG/D ]/ REDUCED STEP BY STEP TO 50MG/D
     Route: 064
     Dates: start: 20140302, end: 20141103
  2. FRAXIPARIN [Concomitant]
     Active Substance: NADROPARIN CALCIUM
     Indication: PROPHYLAXIS OF ABORTION
     Route: 064
     Dates: start: 20140302, end: 20141103
  3. SERTRALINE [Concomitant]
     Active Substance: SERTRALINE HYDROCHLORIDE
     Indication: BIPOLAR DISORDER
     Dosage: 100 MG/D REDUCED TO 50 MG/D FROM GW 6
     Route: 064
     Dates: start: 20140302, end: 20141103
  4. VIGANTOLETTEN [Concomitant]
     Active Substance: CHOLECALCIFEROL
     Indication: VITAMIN D DEFICIENCY
     Route: 064
     Dates: start: 20140302, end: 20141103
  5. DAS GESUNDE PLUS A-Z MAMA [Concomitant]
     Indication: PROPHYLAXIS OF NEURAL TUBE DEFECT
     Route: 064
     Dates: start: 20140302, end: 20141103
  6. GRIPPEIMPFSTOFF [Concomitant]
     Active Substance: INFLUENZA VIRUS VACCINE
     Indication: IMMUNISATION
     Route: 064
  7. ASS 100 [Concomitant]
     Active Substance: ASPIRIN
     Indication: PROPHYLAXIS OF ABORTION
     Route: 064

REACTIONS (1)
  - Large for dates baby [Unknown]

NARRATIVE: CASE EVENT DATE: 20141104
